FAERS Safety Report 5559678-1 (Version None)
Quarter: 2007Q4

REPORT INFORMATION
  Report Type: 
  Country: None (occurrence: None)
  Receive Date: 20071214
  Receipt Date: 20071008
  Transmission Date: 20080405
  Serious: No
  Sender: FDA-Public Use
  Company Number: US-ABBOTT-07P-163-0420549-00

PATIENT
  Sex: Female
  Weight: 160.45 kg

DRUGS (1)
  1. HUMIRA [Suspect]
     Indication: RHEUMATOID ARTHRITIS
     Dosage: LOT # AND EXP NOT AVAILABLE-BOX AND PEN DISCARDED
     Route: 058
     Dates: start: 20071008

REACTIONS (1)
  - INJECTION SITE IRRITATION [None]
